FAERS Safety Report 6248137-9 (Version None)
Quarter: 2009Q2

REPORT INFORMATION
  Report Type: 
  Country: None (occurrence: None)
  Receive Date: 20090629
  Receipt Date: 20090618
  Transmission Date: 20091009
  Serious: Yes (Life-Threatening, Other)
  Sender: FDA-Public Use
  Company Number: JP-PFIZER INC-2009180856

PATIENT
  Age: 58 Year

DRUGS (4)
  1. NORVASC [Suspect]
     Dosage: 5 MG, UNK
     Route: 048
  2. THYRADIN-S [Suspect]
     Route: 048
  3. HIRNAMIN [Suspect]
     Route: 048
  4. MEILAX [Suspect]
     Route: 048

REACTIONS (5)
  - ALTERED STATE OF CONSCIOUSNESS [None]
  - BLOOD PRESSURE DECREASED [None]
  - MULTIPLE DRUG OVERDOSE [None]
  - SUICIDE ATTEMPT [None]
  - TACHYCARDIA [None]
